FAERS Safety Report 22123120 (Version 2)
Quarter: 2023Q1

REPORT INFORMATION
  Report Type: Report from Study
  Country: US (occurrence: US)
  Receive Date: 20230322
  Receipt Date: 20230325
  Transmission Date: 20230418
  Serious: Yes (Death)
  Sender: FDA-Public Use
  Company Number: US-ABBVIE-4697972

PATIENT
  Sex: Male

DRUGS (22)
  1. VENCLEXTA [Suspect]
     Active Substance: VENETOCLAX
     Indication: Myelodysplastic syndrome
     Dosage: FORM STRENGTH: 20 MILLIGRAM
     Route: 048
     Dates: end: 20221209
  2. VENCLEXTA [Suspect]
     Active Substance: VENETOCLAX
     Indication: Myelodysplastic syndrome
     Dosage: FORM STRENGTH: 10 MILLIGRAM, DURATION TEXT: DAY 1
     Route: 048
     Dates: start: 20220418
  3. VENCLEXTA [Suspect]
     Active Substance: VENETOCLAX
     Indication: Myelodysplastic syndrome
     Dosage: FORM STRENGTH: 100 MILLIGRAM, DURATION TEXT: DAY 2
     Route: 048
  4. VENCLEXTA [Suspect]
     Active Substance: VENETOCLAX
     Indication: Myelodysplastic syndrome
     Dosage: FORM STRENGTH: 100 MILLIGRAM, FREQUENCY TEXT: DAY 3
     Route: 048
  5. VENCLEXTA [Suspect]
     Active Substance: VENETOCLAX
     Indication: Myelodysplastic syndrome
     Route: 048
  6. VENCLEXTA [Suspect]
     Active Substance: VENETOCLAX
     Indication: Myelodysplastic syndrome
     Dosage: FORM STRENGTH: 50 MILLIGRAM
     Route: 048
  7. VITAMIN D3 [Concomitant]
     Active Substance: CHOLECALCIFEROL
     Indication: Product used for unknown indication
     Dosage: 1000 UNITS TAB
     Route: 048
  8. PRILOSEC [Concomitant]
     Active Substance: OMEPRAZOLE MAGNESIUM
     Indication: Product used for unknown indication
     Dosage: TAKE 1 CAPSULE (40 MG TOTAL) BY MOUTH 2 (TWO) TIMES DAILY, FORM STRENGTH: 40 MILLIGRAM
     Route: 048
     Dates: start: 20220323
  9. ZOFRAN [Concomitant]
     Active Substance: ONDANSETRON HYDROCHLORIDE
     Indication: Product used for unknown indication
     Dosage: TAKE 8 MG BY MOUTH ONE HOUR PRIOR TO CHEMOTHERAPY APPOINTMENT, FORM STRENGTH: 8 MILLIGRAM
     Route: 048
     Dates: start: 20220418
  10. NOXAFIL [Concomitant]
     Active Substance: POSACONAZOLE
     Indication: Product used for unknown indication
     Dosage: TAKE 300 MG BY MOUTH TWICE A DAY ON DAY 1 THEN 300 MG ONCE DAILY STARTING ON DAY 2, FORM STRENGTH...
     Route: 048
     Dates: start: 20220418
  11. COMPAZINE [Concomitant]
     Active Substance: PROCHLORPERAZINE MALEATE
     Indication: Vomiting
     Dosage: TAKE 1 TABLET (10 MG TOTAL) BY MOUTH EVERY 5 (SIX) HOURS AS NEEDED, FORM STRENGTH: 10 MILLIGRAM
     Route: 048
     Dates: start: 20220418
  12. PERCOCET [Concomitant]
     Active Substance: ACETAMINOPHEN\OXYCODONE HYDROCHLORIDE
     Indication: Pain
     Dosage: 5-325 MG PER TABLET
     Dates: start: 20220405
  13. ZYLOPRIM [Concomitant]
     Active Substance: ALLOPURINOL
     Indication: Product used for unknown indication
     Dosage: FORM STRENGTH: 100 MILLIGRAM
     Route: 048
     Dates: start: 20220418
  14. SYNTHROID [Concomitant]
     Active Substance: LEVOTHYROXINE SODIUM
     Indication: Product used for unknown indication
     Dosage: TAKE 1 TABLET (88 MCG TOTAL) BY MOUTH DAILY, FORM STRENGTH: 88 MICROGRAM
     Route: 048
     Dates: start: 20220406, end: 20220706
  15. NEURONTIN [Concomitant]
     Active Substance: GABAPENTIN
     Indication: Pain
     Dosage: FORM STRENGTH: 300 MILLIGRAM
     Route: 048
     Dates: start: 20211108, end: 20221108
  16. LASIX [Concomitant]
     Active Substance: FUROSEMIDE
     Indication: Product used for unknown indication
     Dosage: FORM STRENGTH: 20 MILLIGRAM
     Route: 048
     Dates: start: 20211222, end: 20221222
  17. ZOVIRAX [Concomitant]
     Active Substance: ACYCLOVIR
     Indication: Product used for unknown indication
     Dosage: FORM STRENGTH: 400 MILLIGRAM
     Route: 048
     Dates: start: 20220418
  18. ALDACTONE [Concomitant]
     Active Substance: SPIRONOLACTONE
     Indication: Product used for unknown indication
     Dosage: TAKE 2 TABLETS (50 MG TOTAL) MOUTH 2 (TWO) TIMES DAILY, FORM STRENGTH: 25 MILLIGRAM
     Route: 048
     Dates: start: 20211222, end: 20221222
  19. DIFLUCAN [Concomitant]
     Active Substance: FLUCONAZOLE
     Indication: Product used for unknown indication
     Dosage: FORM STRENGTH: 200 MILLIGRAM
     Route: 048
     Dates: start: 20220225, end: 20220526
  20. FLOMAX [Concomitant]
     Active Substance: TAMSULOSIN HYDROCHLORIDE
     Indication: Product used for unknown indication
     Dosage: 0.4 MG 24 HR CAPSULE
     Route: 048
     Dates: start: 20220204
  21. PROSCAR [Concomitant]
     Active Substance: FINASTERIDE
     Indication: Product used for unknown indication
     Dosage: FORM STRENGTH: 5 MILLIGRAM
     Route: 048
     Dates: start: 20220204
  22. BACTRIM [Concomitant]
     Active Substance: SULFAMETHOXAZOLE\TRIMETHOPRIM
     Indication: Product used for unknown indication
     Dosage: TIME INTERVAL: 0.33333333 WEEKS: 800-160 MG PER TABLET, DS
     Route: 048
     Dates: start: 20220418

REACTIONS (2)
  - Death [Fatal]
  - Off label use [Unknown]
